FAERS Safety Report 24049147 (Version 1)
Quarter: 2024Q3

REPORT INFORMATION
  Report Type: Spontaneous
  Country: CN (occurrence: CN)
  Receive Date: 20240704
  Receipt Date: 20240704
  Transmission Date: 20241017
  Serious: Yes (Hospitalization, Other)
  Sender: JOHNSON AND JOHNSON
  Company Number: CN-JNJFOC-20240673913

PATIENT
  Age: 45 Year
  Sex: Female
  Weight: 52.5 kg

DRUGS (1)
  1. RISPERDAL [Suspect]
     Active Substance: RISPERIDONE
     Indication: Schizophrenia
     Route: 048
     Dates: start: 20240509, end: 20240612

REACTIONS (2)
  - Hyperprolactinaemia [Recovering/Resolving]
  - Menopause [Recovering/Resolving]

NARRATIVE: CASE EVENT DATE: 20240501
